FAERS Safety Report 5851519-8 (Version None)
Quarter: 2008Q3

REPORT INFORMATION
  Report Type: 
  Country: None (occurrence: None)
  Receive Date: 20080820
  Receipt Date: 20080811
  Transmission Date: 20090109
  Serious: Yes (Other)
  Sender: FDA-Public Use
  Company Number: GB-ELI_LILLY_AND_COMPANY-GB200612003919

PATIENT
  Age: 37 Year
  Sex: Female
  Weight: 107 kg

DRUGS (3)
  1. FLUOXETINE [Suspect]
     Indication: ANXIETY
     Dosage: 20 MG, UNK
     Dates: start: 20060914
  2. SERTRALINE HYDROCHLORIDE [Concomitant]
     Indication: ANXIETY
     Dosage: 50 MG, DAILY (1/D)
     Route: 048
     Dates: start: 20060323
  3. SERTRALINE HYDROCHLORIDE [Concomitant]
     Dosage: 100 MG, DAILY (1/D)
     Route: 048
     Dates: end: 20060914

REACTIONS (4)
  - BLOOD PRESSURE INCREASED [None]
  - CAESAREAN SECTION [None]
  - PLACENTA PRAEVIA [None]
  - VAGINAL HAEMORRHAGE [None]
